FAERS Safety Report 6575810-5 (Version None)
Quarter: 2010Q1

REPORT INFORMATION
  Report Type: 
  Country: None (occurrence: None)
  Receive Date: 20100209
  Receipt Date: 20091222
  Transmission Date: 20100710
  Serious: Yes (Other)
  Sender: FDA-Public Use
  Company Number: FR-JNJFOC-20091206675

PATIENT
  Sex: Male
  Weight: 105 kg

DRUGS (1)
  1. EPITOMAX [Suspect]
     Indication: DRUG DEPENDENCE
     Route: 048
     Dates: start: 20090806, end: 20090825

REACTIONS (4)
  - ANHIDROSIS [None]
  - HYPERTHERMIA [None]
  - OFF LABEL USE [None]
  - RENAL COLIC [None]
